FAERS Safety Report 13984353 (Version 1)
Quarter: 2017Q3

REPORT INFORMATION
  Report Type: Report from Study
  Country: US (occurrence: US)
  Receive Date: 20170918
  Receipt Date: 20170918
  Transmission Date: 20171128
  Serious: Yes (Hospitalization)
  Sender: FDA-Public Use
  Company Number: US-EISAI MEDICAL RESEARCH-EC-2015-010444

PATIENT
  Age: 55 Year
  Sex: Male
  Weight: 90.9 kg

DRUGS (4)
  1. PROMETHAZINE [Concomitant]
     Active Substance: PROMETHAZINE\PROMETHAZINE HYDROCHLORIDE
  2. LENVIMA [Suspect]
     Active Substance: LENVATINIB
     Indication: THYROID CANCER
     Route: 048
     Dates: start: 20150722, end: 20151113
  3. LENVIMA [Suspect]
     Active Substance: LENVATINIB
     Route: 048
     Dates: start: 20160821, end: 2017
  4. LENVIMA [Suspect]
     Active Substance: LENVATINIB
     Route: 048
     Dates: end: 20160808

REACTIONS (9)
  - Blood pressure fluctuation [Unknown]
  - Conjunctival haemorrhage [Unknown]
  - Vocal cord paralysis [Unknown]
  - Pancreatitis [Unknown]
  - Nausea [Unknown]
  - Aphonia [Unknown]
  - Pain in extremity [Unknown]
  - Vomiting [Unknown]
  - Oral fungal infection [Unknown]

NARRATIVE: CASE EVENT DATE: 2015
